FAERS Safety Report 13226274 (Version 1)
Quarter: 2017Q1

REPORT INFORMATION
  Report Type: Spontaneous
  Country: US (occurrence: US)
  Receive Date: 20170213
  Receipt Date: 20170213
  Transmission Date: 20170428
  Serious: Yes (Hospitalization)
  Sender: FDA-Public Use
  Company Number: None

PATIENT
  Age: 63 Year
  Sex: Female
  Weight: 73 kg

DRUGS (2)
  1. IP CISPLATIN [Suspect]
     Active Substance: CISPLATIN
     Indication: FALLOPIAN TUBE CANCER
     Route: 033
     Dates: start: 20160718
  2. IP AMPLIGEN [Suspect]
     Active Substance: RINTATOLIMOD
     Indication: FALLOPIAN TUBE CANCER
     Route: 033
     Dates: start: 20160719

REACTIONS (3)
  - Small intestinal obstruction [None]
  - Nausea [None]
  - Abdominal pain [None]

NARRATIVE: CASE EVENT DATE: 20170121
